FAERS Safety Report 9485822 (Version 1)
Quarter: 2013Q3

REPORT INFORMATION
  Report Type: Spontaneous
  Country: US (occurrence: None)
  Receive Date: 20130827
  Receipt Date: 20130827
  Transmission Date: 20140515
  Serious: Yes (Life-Threatening, Hospitalization)
  Sender: FDA-Public Use
  Company Number: None

PATIENT
  Age: 64 Year
  Sex: Male
  Weight: 133.6 kg

DRUGS (1)
  1. NAPROXEN [Suspect]
     Dosage: 500 MG  BID  PO
     Route: 048
     Dates: start: 20130526, end: 20130603

REACTIONS (8)
  - Diarrhoea [None]
  - Thrombocytopenia [None]
  - Gastric haemorrhage [None]
  - Nausea [None]
  - Dyspnoea [None]
  - Melaena [None]
  - Oedema peripheral [None]
  - Drug dose omission [None]
